FAERS Safety Report 7803623-2 (Version None)
Quarter: 2011Q4

REPORT INFORMATION
  Report Type: 
  Country: None (occurrence: None)
  Receive Date: 20111010
  Receipt Date: 20110928
  Transmission Date: 20120403
  Serious: Yes (Hospitalization)
  Sender: FDA-Public Use
  Company Number: US-BIOGENIDEC-2011BI029831

PATIENT
  Age: 57 Year
  Sex: Female

DRUGS (3)
  1. TYSABRI [Suspect]
     Indication: MULTIPLE SCLEROSIS
     Route: 042
     Dates: start: 20090319, end: 20110830
  2. AVONEX [Concomitant]
     Indication: MULTIPLE SCLEROSIS
     Dates: end: 20090206
  3. AVONEX [Concomitant]
     Dates: start: 20090601

REACTIONS (1)
  - ENDOMETRIAL CANCER [None]
